FAERS Safety Report 7335012-1 (Version None)
Quarter: 2011Q1

REPORT INFORMATION
  Report Type: 
  Country: None (occurrence: None)
  Receive Date: 20110302
  Receipt Date: 20110302
  Transmission Date: 20110831
  Serious: Yes (Death)
  Sender: FDA-Public Use
  Company Number: None

PATIENT
  Sex: Female
  Weight: 71.2147 kg

DRUGS (1)
  1. METOPROLOL SUCCINATE [Suspect]
     Indication: DEATH
     Dates: start: 20070222, end: 20070509

REACTIONS (8)
  - RENAL FAILURE [None]
  - ASTHENIA [None]
  - COMA [None]
  - BLOOD PRESSURE DECREASED [None]
  - ABASIA [None]
  - HALLUCINATION [None]
  - CEREBRAL THROMBOSIS [None]
  - THROMBOSIS [None]
